FAERS Safety Report 5934548-5 (Version None)
Quarter: 2008Q4

REPORT INFORMATION
  Report Type: 
  Country: None (occurrence: None)
  Receive Date: 20081029
  Receipt Date: 20081023
  Transmission Date: 20090506
  Serious: Yes (Hospitalization)
  Sender: FDA-Public Use
  Company Number: GR-ABBOTT-08P-066-0483873-00

PATIENT
  Age: 81 Year
  Sex: Male
  Weight: 63 kg

DRUGS (13)
  1. ZEMPLAR [Suspect]
     Indication: HYPERPARATHYROIDISM SECONDARY
     Route: 042
     Dates: start: 20070424
  2. EPOETIN BETA [Concomitant]
     Indication: DRUG USE FOR UNKNOWN INDICATION
  3. SACCHARATED IRON OXIDE [Concomitant]
     Indication: DRUG USE FOR UNKNOWN INDICATION
  4. LEVOCARNITINE [Concomitant]
     Indication: DRUG USE FOR UNKNOWN INDICATION
  5. NEUROBION [Concomitant]
     Indication: DRUG USE FOR UNKNOWN INDICATION
  6. BUFLOMEDIL HYDROCHLORIDE [Concomitant]
     Indication: DRUG USE FOR UNKNOWN INDICATION
  7. SEVELAMER [Concomitant]
     Indication: DRUG USE FOR UNKNOWN INDICATION
  8. OMEPRAZOLE [Concomitant]
     Indication: DRUG USE FOR UNKNOWN INDICATION
  9. ATORVASTATIN CALCIUM [Concomitant]
     Indication: DRUG USE FOR UNKNOWN INDICATION
  10. ACETYLSALICYLIC ACID SRT [Concomitant]
     Indication: DRUG USE FOR UNKNOWN INDICATION
  11. NITROGLYCERIN [Concomitant]
     Indication: DRUG USE FOR UNKNOWN INDICATION
  12. CARVEDILOL [Concomitant]
     Indication: DRUG USE FOR UNKNOWN INDICATION
  13. NOVAMIX [Concomitant]
     Indication: DRUG USE FOR UNKNOWN INDICATION

REACTIONS (1)
  - ANGINA PECTORIS [None]
